FAERS Safety Report 4332346-X (Version None)
Quarter: 2004Q2

REPORT INFORMATION
  Report Type: 
  Country: None (occurrence: None)
  Receive Date: 20040401
  Receipt Date: 20040322
  Transmission Date: 20050107
  Serious: No
  Sender: FDA-Public Use
  Company Number: 2004GB00707

PATIENT
  Age: 27 Year
  Sex: Male

DRUGS (1)
  1. SEROQUEL [Suspect]
     Dates: start: 20040209

REACTIONS (1)
  - NEUTROPENIA [None]
